FAERS Safety Report 7966918-8 (Version None)
Quarter: 2011Q4

REPORT INFORMATION
  Report Type: 
  Country: None (occurrence: None)
  Receive Date: 20111209
  Receipt Date: 20111207
  Transmission Date: 20120403
  Serious: Yes (Other)
  Sender: FDA-Public Use
  Company Number: CA-PFIZER INC-2011248283

PATIENT
  Age: 65 Year
  Sex: Female

DRUGS (16)
  1. COUMADIN [Concomitant]
     Dosage: 2 MG, 1X/DAY
     Route: 048
     Dates: start: 20071001
  2. EZETIMIBE [Concomitant]
     Dosage: 10 MG, 1X/DAY AT BEDTIME
     Route: 048
     Dates: start: 20070601
  3. DIOVAN HCT [Concomitant]
     Dosage: HYDROCHLOROTHIAZIDE 160MG/VALSARTAN 25MG; 1 TABLET IN THE MORNING
     Route: 048
     Dates: start: 20070601
  4. BIAXIN [Suspect]
     Dosage: 1 CAPLET , 2X/DAY
     Dates: start: 20111003, end: 20111011
  5. DIGOXIN [Concomitant]
     Dosage: 0.25 MG, 1X/DAY IN THE MORNING
     Route: 048
     Dates: start: 20070601
  6. NORVASC [Concomitant]
     Dosage: UNK
     Route: 048
     Dates: end: 20111018
  7. SYNTHROID [Concomitant]
     Dosage: 0.175 MG, UNK
     Route: 048
     Dates: start: 20090101
  8. SYMBICORT [Concomitant]
     Dosage: 200 UG, 2X/DAY
     Route: 055
     Dates: start: 20080101
  9. CALCIUM [Concomitant]
     Dosage: UNK
  10. XALATAN [Concomitant]
     Dosage: UNK
  11. CORDARONE [Suspect]
     Dosage: 200 MG, 1X/DAY
     Route: 048
     Dates: start: 20070101
  12. CORDARONE [Suspect]
     Dosage: 200 MG, 1X/DAY
     Route: 048
     Dates: start: 20110901
  13. NEXIUM [Concomitant]
     Dosage: 40 MG, 2X/DAY
     Route: 048
     Dates: start: 20111017
  14. LATANOPROST [Concomitant]
     Dosage: 1 GTT, 1X/DAY
     Route: 047
     Dates: start: 20111019
  15. COLACE [Concomitant]
     Dosage: 100 MG, 2 CAPSULES 2X/DAY AS NEEDED
     Route: 048
     Dates: start: 20081201
  16. SYNTHROID [Concomitant]
     Dosage: 0.2 MG, UNK
     Route: 048
     Dates: start: 20100901

REACTIONS (3)
  - PARAESTHESIA [None]
  - THROAT IRRITATION [None]
  - RASH GENERALISED [None]
